FAERS Safety Report 16266111 (Version 1)
Quarter: 2019Q2

REPORT INFORMATION
  Report Type: Spontaneous
  Country: US (occurrence: US)
  Receive Date: 20190502
  Receipt Date: 20190502
  Transmission Date: 20190711
  Serious: Yes (Death, Other)
  Sender: FDA-Public Use
  Company Number: US-ASTRAZENECA-2019SE63360

PATIENT
  Age: 3752 Week
  Sex: Male
  Weight: 34 kg

DRUGS (2)
  1. TAGRISSO [Suspect]
     Active Substance: OSIMERTINIB
     Indication: LUNG CARCINOMA CELL TYPE UNSPECIFIED STAGE IV
     Route: 048
     Dates: start: 201810, end: 201811
  2. TAGRISSO [Suspect]
     Active Substance: OSIMERTINIB
     Indication: LUNG CARCINOMA CELL TYPE UNSPECIFIED STAGE IV
     Route: 048
     Dates: start: 201811

REACTIONS (4)
  - Death [Fatal]
  - Carcinoembryonic antigen increased [Recovered/Resolved with Sequelae]
  - Weight decreased [Not Recovered/Not Resolved]
  - Oxygen saturation decreased [Fatal]

NARRATIVE: CASE EVENT DATE: 201810
